FAERS Safety Report 10221413 (Version 1)
Quarter: 2014Q2

REPORT INFORMATION
  Report Type: Spontaneous
  Country: SE (occurrence: SE)
  Receive Date: 20140606
  Receipt Date: 20140606
  Transmission Date: 20141212
  Serious: Yes (Other)
  Sender: FDA-Public Use
  Company Number: SE-SA-2014SA069219

PATIENT
  Age: 77 Year
  Sex: Male

DRUGS (2)
  1. TAXOTERE [Suspect]
     Indication: PROSTATE CANCER
     Dosage: INFUSION SOLUTION
     Dates: start: 20140408, end: 20140408
  2. TAXOTERE [Suspect]
     Indication: PROSTATE CANCER
     Dosage: INFUSION SOLUTION
     Dates: start: 20140505, end: 20140505

REACTIONS (3)
  - Cold sweat [Recovered/Resolved]
  - Blood pressure decreased [Recovered/Resolved]
  - Nausea [Recovered/Resolved]
